FAERS Safety Report 11394212 (Version 2)
Quarter: 2015Q3

REPORT INFORMATION
  Report Type: Spontaneous
  Country: US (occurrence: US)
  Receive Date: 20150819
  Receipt Date: 20150929
  Transmission Date: 20151125
  Serious: Yes (Other)
  Sender: FDA-Public Use
  Company Number: US-B.I. PHARMACEUTICALS,INC./RIDGEFIELD-2015-BI-44471BP

PATIENT
  Age: 83 Year
  Sex: Male
  Weight: 106.14 kg

DRUGS (14)
  1. LEVOCETERIZINE [Concomitant]
     Indication: PRODUCT USED FOR UNKNOWN INDICATION
     Dosage: 2.1429 MG
     Route: 048
  2. SINGULAIR [Concomitant]
     Active Substance: MONTELUKAST SODIUM
     Indication: HYPERSENSITIVITY
     Dosage: 0.4286 ANZ
     Route: 048
     Dates: start: 2005
  3. LIPITOR [Concomitant]
     Active Substance: ATORVASTATIN CALCIUM
     Indication: PRODUCT USED FOR UNKNOWN INDICATION
     Dosage: 5.7143 MG
     Route: 048
     Dates: start: 2005
  4. METFORMIN [Concomitant]
     Active Substance: METFORMIN HYDROCHLORIDE
     Indication: DIABETES MELLITUS
     Dosage: 2 ANZ
     Route: 048
     Dates: start: 2015
  5. DULERA [Concomitant]
     Active Substance: FORMOTEROL FUMARATE DIHYDRATE\MOMETASONE FUROATE
     Indication: HYPERSENSITIVITY
     Route: 055
  6. DULERA [Concomitant]
     Active Substance: FORMOTEROL FUMARATE DIHYDRATE\MOMETASONE FUROATE
     Indication: COUGH
  7. FLOMAX [Suspect]
     Active Substance: TAMSULOSIN HYDROCHLORIDE
     Dosage: 0.4 MG
     Route: 048
     Dates: start: 20150513
  8. DYMISTA [Concomitant]
     Active Substance: AZELASTINE HYDROCHLORIDE\FLUTICASONE PROPIONATE
     Indication: COUGH
  9. JANUVIA [Concomitant]
     Active Substance: SITAGLIPTIN PHOSPHATE
     Indication: DIABETES MELLITUS
     Dosage: 100 MG
     Route: 048
     Dates: start: 2005
  10. COMBIVENT [Concomitant]
     Active Substance: ALBUTEROL SULFATE\IPRATROPIUM BROMIDE
     Indication: HYPERSENSITIVITY
     Route: 055
     Dates: end: 2013
  11. DYMISTA [Concomitant]
     Active Substance: AZELASTINE HYDROCHLORIDE\FLUTICASONE PROPIONATE
     Indication: HYPERSENSITIVITY
     Dosage: FORMULATION: NASAL SPRAY
     Route: 045
  12. FLOMAX [Suspect]
     Active Substance: TAMSULOSIN HYDROCHLORIDE
     Indication: POLLAKIURIA
     Dosage: 0.4 MG
     Route: 048
     Dates: start: 1997
  13. AVODART [Concomitant]
     Active Substance: DUTASTERIDE
     Indication: PRODUCT USED FOR UNKNOWN INDICATION
     Dosage: 0.5 MG
     Route: 048
  14. FLONASE [Concomitant]
     Active Substance: FLUTICASONE PROPIONATE
     Indication: UPPER-AIRWAY COUGH SYNDROME
     Dosage: FORMULATION: NASAL SPRAY
     Route: 045
     Dates: start: 2000

REACTIONS (5)
  - Macular degeneration [Not Recovered/Not Resolved]
  - Pollakiuria [Not Recovered/Not Resolved]
  - Lymphoma [Recovered/Resolved]
  - Pollakiuria [Not Recovered/Not Resolved]
  - Lung neoplasm malignant [Recovered/Resolved]

NARRATIVE: CASE EVENT DATE: 2001
